FAERS Safety Report 25106385 (Version 2)
Quarter: 2025Q2

REPORT INFORMATION
  Report Type: Report from Study
  Country: GB (occurrence: GB)
  Receive Date: 20250321
  Receipt Date: 20250624
  Transmission Date: 20250717
  Serious: Yes (Hospitalization)
  Sender: JOHNSON AND JOHNSON
  Company Number: GB-JNJFOC-20250349750

PATIENT
  Age: 69 Year
  Sex: Male
  Weight: 157 kg

DRUGS (15)
  1. TREMFYA [Suspect]
     Active Substance: GUSELKUMAB
     Indication: Psoriasis
     Route: 065
     Dates: start: 20191209, end: 20200925
  2. TREMFYA [Suspect]
     Active Substance: GUSELKUMAB
  3. TREMFYA [Suspect]
     Active Substance: GUSELKUMAB
  4. LISINOPRIL [Concomitant]
     Active Substance: LISINOPRIL
     Indication: Product used for unknown indication
     Dates: start: 20051221
  5. INDAP [Concomitant]
     Indication: Product used for unknown indication
     Dates: start: 20060921
  6. IBUPAN [IBUPROFEN] [Concomitant]
     Indication: Product used for unknown indication
     Dates: start: 20070326
  7. DOXACIN [DOXAZOSIN MESILATE] [Concomitant]
     Indication: Product used for unknown indication
     Dates: start: 20070508
  8. COCODAMOL [Concomitant]
     Active Substance: ACETAMINOPHEN\CODEINE PHOSPHATE
     Indication: Product used for unknown indication
     Dates: start: 20090612
  9. LEVOTHYROXINE [Concomitant]
     Active Substance: LEVOTHYROXINE
     Indication: Product used for unknown indication
     Dates: start: 20120101
  10. PRAVASTATIN SODIUM [Concomitant]
     Active Substance: PRAVASTATIN SODIUM
     Indication: Product used for unknown indication
     Dates: start: 20120101
  11. METFORATIO [METFORMIN] [Concomitant]
     Indication: Product used for unknown indication
     Dates: start: 20121002
  12. LEVOTHYROXINE [Concomitant]
     Active Substance: LEVOTHYROXINE
     Indication: Product used for unknown indication
     Dates: start: 20130923
  13. ORLISTAT [Concomitant]
     Active Substance: ORLISTAT
     Indication: Product used for unknown indication
     Dates: start: 20141201
  14. LERCADINE [Concomitant]
     Indication: Product used for unknown indication
     Dates: start: 20160301
  15. FUROBE [Concomitant]
     Indication: Product used for unknown indication
     Dates: start: 20170401

REACTIONS (4)
  - Left ventricular dysfunction [Recovered/Resolved]
  - Atrial pressure increased [Recovered/Resolved]
  - Left atrial enlargement [Recovered/Resolved]
  - Aortic valve calcification [Recovered/Resolved]

NARRATIVE: CASE EVENT DATE: 20201130
